FAERS Safety Report 9083589 (Version 1)
Quarter: 2013Q1

REPORT INFORMATION
  Report Type: Report from Study
  Country: US (occurrence: US)
  Receive Date: 20130131
  Receipt Date: 20130131
  Transmission Date: 20140127
  Serious: No
  Sender: FDA-Public Use
  Company Number: US-ABBOTT-12P-163-1010825-00

PATIENT
  Age: 34 Year
  Sex: Male

DRUGS (2)
  1. HUMIRA [Suspect]
     Indication: PSORIASIS
     Dates: start: 20121002
  2. VALACYCLOVIR HCL [Concomitant]
     Indication: HERPES SIMPLEX
     Dosage: DAILY

REACTIONS (1)
  - Influenza like illness [Recovered/Resolved]
